FAERS Safety Report 4819573-X (Version None)
Quarter: 2005Q4

REPORT INFORMATION
  Report Type: 
  Country: None (occurrence: None)
  Receive Date: 20051102
  Receipt Date: 20051102
  Transmission Date: 20060501
  Serious: Yes (Disabling)
  Sender: FDA-Public Use
  Company Number: None

PATIENT
  Sex: Male
  Weight: 66 kg

DRUGS (2)
  1. TYLENOL (CAPLET) [Suspect]
     Indication: CYTOMEGALOVIRUS CHORIORETINITIS
  2. GANCICLOVIR [Suspect]

REACTIONS (6)
  - DIALYSIS [None]
  - IMPAIRED HEALING [None]
  - RECTAL ABSCESS [None]
  - RENAL FAILURE ACUTE [None]
  - RENAL TUBULAR NECROSIS [None]
  - STOMATITIS [None]
